FAERS Safety Report 6479859-2 (Version None)
Quarter: 2009Q4

REPORT INFORMATION
  Report Type: 
  Country: None (occurrence: None)
  Receive Date: 20091202
  Receipt Date: 20091116
  Transmission Date: 20100525
  Serious: Yes (Other)
  Sender: FDA-Public Use
  Company Number: BVT-000371

PATIENT
  Sex: Female
  Weight: 72 kg

DRUGS (11)
  1. KINERET [Suspect]
     Indication: RHEUMATOID ARTHRITIS
     Dates: start: 20021128, end: 20040815
  2. METHOTREXATE [Concomitant]
  3. LEFLUNOMIDE [Concomitant]
  4. PREDNISOLONE [Concomitant]
  5. BENDROFLUAZIDE [Concomitant]
  6. CALCIUM [Concomitant]
  7. ESTRADERM [Concomitant]
  8. FOLIC ACID [Concomitant]
  9. PARACETAMOL [Concomitant]
  10. TRAMADOL HCL [Concomitant]
  11. MATERNAL VITAMIN AND MINERAL FORMULA [Concomitant]

REACTIONS (1)
  - SKIN CANCER [None]
